FAERS Safety Report 7596027-1 (Version None)
Quarter: 2011Q3

REPORT INFORMATION
  Report Type: 
  Country: None (occurrence: None)
  Receive Date: 20110707
  Receipt Date: 20110629
  Transmission Date: 20111222
  Serious: Yes (Other)
  Sender: FDA-Public Use
  Company Number: PHHY2011BR31064

PATIENT
  Sex: Female

DRUGS (1)
  1. RASILEZ AMLO [Suspect]
     Dosage: 1 DF, 150/5 MG

REACTIONS (1)
  - BLOOD PRESSURE INCREASED [None]
